FAERS Safety Report 22305843 (Version 1)
Quarter: 2023Q2

REPORT INFORMATION
  Report Type: Spontaneous
  Country: US (occurrence: US)
  Receive Date: 20230511
  Receipt Date: 20230511
  Transmission Date: 20230722
  Serious: Yes (Hospitalization, Other)
  Sender: FDA-Public Use
  Company Number: US-AUROBINDO-AUR-APL-2023-035000

PATIENT
  Age: 33 Year
  Sex: Female

DRUGS (4)
  1. FAMOTIDINE [Interacting]
     Active Substance: FAMOTIDINE
     Indication: Product used for unknown indication
     Dosage: UNK
     Route: 065
  2. DEPAKOTE [Interacting]
     Active Substance: DIVALPROEX SODIUM
     Indication: Product used for unknown indication
     Dosage: 150 MILLIGRAM
     Route: 065
     Dates: start: 20221114
  3. RECORLEV [Interacting]
     Active Substance: LEVOKETOCONAZOLE
     Indication: Hyperadrenocorticism
     Dosage: 1 DOSAGE FORM, TWO TIMES A DAY
     Route: 048
     Dates: start: 20221114
  4. INVEGA SUSTENNA [Concomitant]
     Active Substance: PALIPERIDONE PALMITATE
     Indication: Product used for unknown indication
     Dosage: UNK
     Route: 065

REACTIONS (22)
  - Anxiety [Recovered/Resolved]
  - COVID-19 [Unknown]
  - Drug interaction [Recovered/Resolved]
  - Feeling abnormal [Unknown]
  - Female reproductive tract disorder [Unknown]
  - Hair texture abnormal [Unknown]
  - Hospitalisation [Unknown]
  - Illness [Unknown]
  - Lip dry [Unknown]
  - Malaise [Unknown]
  - Memory impairment [Unknown]
  - Nausea [Recovered/Resolved]
  - Psychotic symptom [Recovered/Resolved]
  - Skin striae [Recovered/Resolved]
  - Smoking cessation therapy [Unknown]
  - Stress [Unknown]
  - Unevaluable event [Unknown]
  - Vaginal haemorrhage [Unknown]
  - Vomiting [Recovered/Resolved]
  - Weight decreased [Recovered/Resolved]
  - Product dose omission issue [Unknown]
  - Therapeutic response unexpected [Unknown]

NARRATIVE: CASE EVENT DATE: 20220101
